FAERS Safety Report 9918407 (Version 1)
Quarter: 2014Q1

REPORT INFORMATION
  Report Type: Spontaneous
  Country: US (occurrence: US)
  Receive Date: 20140224
  Receipt Date: 20140224
  Transmission Date: 20141002
  Serious: No
  Sender: FDA-Public Use
  Company Number: US-BIOGENIDEC-2014BI016249

PATIENT
  Age: 61 Year
  Sex: Male

DRUGS (4)
  1. AVONEX [Suspect]
     Indication: MULTIPLE SCLEROSIS
     Route: 030
     Dates: start: 20130212
  2. CLINDAMYCIN HCL [Concomitant]
  3. SULFAMETHOXAZOLE-TMP DS [Concomitant]
  4. WARFARIN SODIUM [Concomitant]

REACTIONS (3)
  - Back pain [Not Recovered/Not Resolved]
  - Contusion [Not Recovered/Not Resolved]
  - Fall [Recovered/Resolved]
